FAERS Safety Report 9587939 (Version 1)
Quarter: 2013Q4

REPORT INFORMATION
  Report Type: Spontaneous
  Country: BR (occurrence: BR)
  Receive Date: 20131003
  Receipt Date: 20131003
  Transmission Date: 20140711
  Serious: Yes (Death, Hospitalization, Other)
  Sender: FDA-Public Use
  Company Number: PHHY2013BR110512

PATIENT
  Age: 81 Year
  Sex: Female

DRUGS (3)
  1. EXELON PATCH [Suspect]
     Indication: DEMENTIA ALZHEIMER^S TYPE
     Dosage: ONE ADHESIVE DAILY (9MG/5CM2)
     Route: 062
     Dates: start: 201302
  2. EXELON PATCH [Suspect]
     Dosage: ONE ADHESIVE DAILY (18MG/10CM2)
     Route: 062
  3. DIOVAN HCT [Concomitant]
     Indication: HYPERTENSION
     Dosage: UNK UKN, UNK

REACTIONS (3)
  - Cardiac failure [Fatal]
  - Respiratory failure [Fatal]
  - Malaise [Fatal]
